FAERS Safety Report 4990301-0 (Version None)
Quarter: 2006Q2

REPORT INFORMATION
  Report Type: 
  Country: None (occurrence: None)
  Receive Date: 20060427
  Receipt Date: 20060413
  Transmission Date: 20061013
  Serious: Yes (Hospitalization)
  Sender: FDA-Public Use
  Company Number: 2006RR-02008

PATIENT
  Age: 63 Year
  Sex: Female

DRUGS (5)
  1. FLUOXETINE [Suspect]
     Indication: DEPRESSION
     Dosage: 20 MG, QD, ORAL
     Route: 048
     Dates: start: 20050918, end: 20060322
  2. SERETIDE [Concomitant]
  3. FOLIC ACID [Concomitant]
  4. CLOTRIMAZOLE [Concomitant]
  5. DALTEPARIN [Concomitant]

REACTIONS (1)
  - HYPONATRAEMIA [None]
